FAERS Safety Report 6167762-7 (Version None)
Quarter: 2009Q2

REPORT INFORMATION
  Report Type: 
  Country: None (occurrence: None)
  Receive Date: 20090427
  Receipt Date: 20090325
  Transmission Date: 20091009
  Serious: No
  Sender: FDA-Public Use
  Company Number: US-BAYER-200916589NA

PATIENT
  Sex: Male

DRUGS (1)
  1. AVELOX [Suspect]
     Indication: TONSILLITIS
     Dosage: RECEIVED 2 SAMPLE TABLETS

REACTIONS (8)
  - DYSPHAGIA [None]
  - FATIGUE [None]
  - MYALGIA [None]
  - NAUSEA [None]
  - SALIVARY HYPERSECRETION [None]
  - TENDON PAIN [None]
  - TREMOR [None]
  - VOMITING [None]
